FAERS Safety Report 4721710-2 (Version None)
Quarter: 2005Q3

REPORT INFORMATION
  Report Type: 
  Country: None (occurrence: None)
  Receive Date: 20050721
  Receipt Date: 20050309
  Transmission Date: 20060218
  Serious: No
  Sender: FDA-Public Use
  Company Number: US-BRISTOL-MYERS SQUIBB COMPANY-12892022

PATIENT
  Age: 63 Year
  Sex: Male

DRUGS (3)
  1. COUMADIN [Suspect]
     Dates: start: 20030409
  2. MOBIC [Concomitant]
  3. LEXAPRO [Concomitant]

REACTIONS (1)
  - DRUG INEFFECTIVE [None]
